FAERS Safety Report 5568709-4 (Version None)
Quarter: 2007Q4

REPORT INFORMATION
  Report Type: 
  Country: None (occurrence: None)
  Receive Date: 20071220
  Receipt Date: 20061115
  Transmission Date: 20080405
  Serious: No
  Sender: FDA-Public Use
  Company Number: A0627512A

PATIENT
  Sex: Male

DRUGS (7)
  1. AVODART [Suspect]
     Indication: BENIGN PROSTATIC HYPERPLASIA
     Dosage: .5MG PER DAY
     Route: 048
     Dates: end: 20061114
  2. TERAZOSIN HCL [Concomitant]
     Indication: BLADDER DISORDER
  3. METFORMIN HCL [Concomitant]
  4. OMEPRAZOLE [Concomitant]
  5. LISINOPRIL [Concomitant]
  6. FELODIPINE [Concomitant]
  7. UNKNOWN SUPPLEMENT [Concomitant]

REACTIONS (2)
  - DYSURIA [None]
  - LIBIDO DECREASED [None]
